FAERS Safety Report 13924319 (Version 1)
Quarter: 2017Q3

REPORT INFORMATION
  Report Type: Spontaneous
  Country: US (occurrence: None)
  Receive Date: 20170830
  Receipt Date: 20170830
  Transmission Date: 20171127
  Serious: Yes (Death)
  Sender: FDA-Public Use
  Company Number: None

PATIENT
  Age: 50 Year
  Sex: Female
  Weight: 71.6 kg

DRUGS (2)
  1. AZACITIDINE. [Suspect]
     Active Substance: AZACITIDINE
  2. PEMBROLIZUMAB. [Suspect]
     Active Substance: PEMBROLIZUMAB

REACTIONS (12)
  - Acidosis [None]
  - Hypotension [None]
  - Abdominal pain [None]
  - Grunting [None]
  - Hyperhidrosis [None]
  - Nausea [None]
  - Abdominal distension [None]
  - Haemoglobin decreased [None]
  - Pallor [None]
  - Lethargy [None]
  - Splenic rupture [None]
  - Hypothermia [None]

NARRATIVE: CASE EVENT DATE: 20170825
